FAERS Safety Report 18537507 (Version 1)
Quarter: 2020Q4

REPORT INFORMATION
  Report Type: Report from Study
  Country: US (occurrence: US)
  Receive Date: 20201124
  Receipt Date: 20201124
  Transmission Date: 20210114
  Serious: No
  Sender: FDA-Public Use
  Company Number: NVSC2020US305630

PATIENT
  Sex: Female

DRUGS (1)
  1. COSENTYX [Suspect]
     Active Substance: SECUKINUMAB
     Indication: PRODUCT USED FOR UNKNOWN INDICATION
     Dosage: UNK UNK, UNKNOWN
     Route: 065

REACTIONS (7)
  - Injection site discomfort [Unknown]
  - Ill-defined disorder [Unknown]
  - Pain in extremity [Unknown]
  - Inflammation [Unknown]
  - Limb discomfort [Unknown]
  - Nasopharyngitis [Unknown]
  - Arthritis [Unknown]
